FAERS Safety Report 17097613 (Version 2)
Quarter: 2019Q4

REPORT INFORMATION
  Report Type: Spontaneous
  Country: DE (occurrence: DE)
  Receive Date: 20191202
  Receipt Date: 20191219
  Transmission Date: 20200122
  Serious: Yes (Disabling, Other)
  Sender: FDA-Public Use
  Company Number: DE-SA-2019SA331496

PATIENT
  Sex: Female

DRUGS (3)
  1. TRIMIPRAMINE [Concomitant]
     Active Substance: TRIMIPRAMINE
     Indication: DEPRESSION
     Dosage: 25 MG
     Route: 048
  2. COPAXONE [Concomitant]
     Active Substance: GLATIRAMER ACETATE
  3. AUBAGIO [Suspect]
     Active Substance: TERIFLUNOMIDE
     Indication: RELAPSING-REMITTING MULTIPLE SCLEROSIS
     Dosage: 14 MG, QD
     Route: 048
     Dates: start: 201810

REACTIONS (3)
  - Optic neuritis [Unknown]
  - Myopia [Unknown]
  - Blindness [Unknown]

NARRATIVE: CASE EVENT DATE: 2019
